FAERS Safety Report 18375098 (Version 3)
Quarter: 2021Q1

REPORT INFORMATION
  Report Type: Spontaneous
  Country: US (occurrence: US)
  Receive Date: 20201012
  Receipt Date: 20210311
  Transmission Date: 20210419
  Serious: Yes (Hospitalization, Other)
  Sender: FDA-Public Use
  Company Number: US-INTERNATIONAL MEDICATION SYSTEMS, LIMITED-2092690

PATIENT
  Age: 55 Year
  Sex: Female
  Weight: 74.4 kg

DRUGS (8)
  1. LIDOCAINE HYDROCHLORIDE. [Suspect]
     Active Substance: LIDOCAINE HYDROCHLORIDE
     Indication: LOCAL ANAESTHESIA
     Route: 061
  2. LARYNG?O?JET INJECTOR [Suspect]
     Active Substance: DEVICE
  3. FENTANYL. [Concomitant]
     Active Substance: FENTANYL
  4. VERSED [Concomitant]
     Active Substance: MIDAZOLAM HYDROCHLORIDE
  5. SUCCINYLCHOLINE [Concomitant]
     Active Substance: SUCCINYLCHOLINE
  6. LARYNG?O?JET INJECTOR [Suspect]
     Active Substance: DEVICE
  7. LIDOCAINE. [Concomitant]
     Active Substance: LIDOCAINE
  8. PROPOFOL. [Concomitant]
     Active Substance: PROPOFOL

REACTIONS (3)
  - Foreign body in respiratory tract [Recovered/Resolved]
  - Removal of foreign body from respiratory tract [Recovered/Resolved]
  - Hospitalisation [Recovered/Resolved]

NARRATIVE: CASE EVENT DATE: 20200917
